FAERS Safety Report 8799516 (Version 1)
Quarter: 2012Q4

REPORT INFORMATION
  Report Type: Spontaneous
  Country: GB (occurrence: None)
  Receive Date: 20120914
  Receipt Date: 20120914
  Transmission Date: 20130627
  Serious: Yes (Disabling)
  Sender: FDA-Public Use
  Company Number: GER/UKI/12/0025686

PATIENT
  Age: 54 Year
  Sex: Male
  Weight: 139.7 kg

DRUGS (2)
  1. AMLODIPINE (AMLODIPINE) [Suspect]
     Dosage: 5 mg, 1 in 1 D, Oral
     Route: 048
     Dates: start: 20120412
  2. COAPROVEL [Concomitant]

REACTIONS (1)
  - Eczema [None]
